FAERS Safety Report 13783168 (Version 1)
Quarter: 2017Q3

REPORT INFORMATION
  Report Type: Spontaneous
  Country: FR (occurrence: FR)
  Receive Date: 20170724
  Receipt Date: 20170724
  Transmission Date: 20171127
  Serious: Yes (Other)
  Sender: FDA-Public Use
  Company Number: FR-BAYER-2017-135526

PATIENT
  Age: 33 Year
  Sex: Female

DRUGS (1)
  1. MIRENA [Suspect]
     Active Substance: LEVONORGESTREL
     Indication: CONTRACEPTION
     Dosage: DAILY DOSE 20 MCG/24HR
     Route: 015
     Dates: start: 20160501, end: 20170516

REACTIONS (7)
  - Irritability [Unknown]
  - Hypertrichosis [Unknown]
  - Loss of libido [Unknown]
  - Back pain [Unknown]
  - Weight increased [Unknown]
  - Asthenia [Unknown]
  - Goitre [Unknown]

NARRATIVE: CASE EVENT DATE: 20160530
